FAERS Safety Report 13514799 (Version 2)
Quarter: 2017Q2

REPORT INFORMATION
  Report Type: Report from Study
  Country: None (occurrence: CA)
  Receive Date: 20170504
  Receipt Date: 20170519
  Transmission Date: 20170830
  Serious: No
  Sender: FDA-Public Use
  Company Number: CA-ABBVIE-17P-028-1963139-00

PATIENT
  Sex: Female

DRUGS (2)
  1. TECHNIVIE [Suspect]
     Active Substance: OMBITASVIR HEMINONAHYDRATE\PARITAPREVIR DIHYDRATE\RITONAVIR
     Indication: HEPATITIS C
     Dosage: 2OMBITASVIR/PARITAPREVIR/RITONAVIR 12.5/75/50 MG TAB QD AND 1 DASABUVIR 250 MG TAB BID
     Route: 048
     Dates: start: 20161115, end: 20170207
  2. MODERIBA [Suspect]
     Active Substance: RIBAVIRIN
     Indication: HEPATITIS C
     Route: 048
     Dates: start: 20161115, end: 20170207

REACTIONS (1)
  - Depression [Not Recovered/Not Resolved]
